FAERS Safety Report 6431526-7 (Version None)
Quarter: 2009Q4

REPORT INFORMATION
  Report Type: 
  Country: None (occurrence: None)
  Receive Date: 20091103
  Receipt Date: 20091023
  Transmission Date: 20100525
  Serious: Yes (Other)
  Sender: FDA-Public Use
  Company Number: 220002K09DEU

PATIENT
  Age: 9 Year
  Sex: Female
  Weight: 24.3 kg

DRUGS (2)
  1. SAIZEN [Suspect]
     Indication: GROWTH HORMONE DEFICIENCY
     Dosage: 0.6 MG, 1 IN 1 DAYS, SUBCUTANEOUS
     Route: 058
     Dates: start: 20070712, end: 20080501
  2. DESMOTABS (DESMOPRESSIN ACETATE) [Concomitant]

REACTIONS (1)
  - CNS GERMINOMA [None]
